FAERS Safety Report 7874869-2 (Version None)
Quarter: 2011Q4

REPORT INFORMATION
  Report Type: 
  Country: None (occurrence: None)
  Receive Date: 20111031
  Receipt Date: 20111019
  Transmission Date: 20120403
  Serious: Yes (Hospitalization, Other)
  Sender: FDA-Public Use
  Company Number: US-BAYER-201032539NA

PATIENT
  Age: 38 Year
  Sex: Female
  Weight: 99 kg

DRUGS (8)
  1. YAZ [Suspect]
     Indication: CONTRACEPTION
     Dosage: UNK
     Dates: start: 20031001, end: 20090201
  2. HYDROCODONE BITARTRATE [Concomitant]
     Dosage: 1 DF, UNK
     Route: 048
     Dates: start: 20090920
  3. CIPROFLOXACIN [Concomitant]
     Dosage: 500 MG, UNK
     Route: 048
     Dates: start: 20090920
  4. YASMIN [Suspect]
     Indication: CONTRACEPTION
     Dosage: UNK UNK, QD
     Route: 048
     Dates: start: 20031001, end: 20090201
  5. PROMETHAZINE [Concomitant]
     Dosage: 25 MG, UNK
     Dates: start: 20090920
  6. DROSPIRENONE AND ETHINYL ESTRADIOL [Suspect]
     Indication: CONTRACEPTION
     Dosage: UNK UNK, QD
     Route: 048
     Dates: start: 20031001, end: 20090201
  7. SUDAFED 12 HOUR [Concomitant]
     Dosage: 1 DF, PRN
     Route: 048
     Dates: end: 20090216
  8. CLARITIN [Concomitant]
     Dosage: 1 DF, PRN
     Route: 048
     Dates: end: 20090216

REACTIONS (4)
  - BILE DUCT STONE [None]
  - GALLBLADDER DISORDER [None]
  - PANCREATITIS [None]
  - CHOLELITHIASIS [None]
